FAERS Safety Report 17121178 (Version 1)
Quarter: 2019Q4

REPORT INFORMATION
  Report Type: Spontaneous
  Country: US (occurrence: US)
  Receive Date: 20191205
  Receipt Date: 20191205
  Transmission Date: 20200122
  Serious: Yes (Other)
  Sender: FDA-Public Use
  Company Number: None

PATIENT
  Age: 57 Year
  Sex: Female
  Weight: 72 kg

DRUGS (6)
  1. CREATOR 5MG [Concomitant]
  2. FLONASE [Suspect]
     Active Substance: FLUTICASONE PROPIONATE
     Indication: UPPER-AIRWAY COUGH SYNDROME
     Dosage: ?          OTHER STRENGTH:50MCG PER SPRAY;QUANTITY:144 SPRAY(S);?
     Route: 055
     Dates: start: 20191001, end: 20191202
  3. CRESTOR [Concomitant]
     Active Substance: ROSUVASTATIN CALCIUM
  4. VITAMIN B12 [Concomitant]
     Active Substance: CYANOCOBALAMIN
  5. CENTRUM MULTIVITAMIN [Concomitant]
  6. FLONASE [Suspect]
     Active Substance: FLUTICASONE PROPIONATE
     Indication: MULTIPLE ALLERGIES
     Dosage: ?          OTHER STRENGTH:50MCG PER SPRAY;QUANTITY:144 SPRAY(S);?
     Route: 055
     Dates: start: 20191001, end: 20191202

REACTIONS (1)
  - Oesophageal candidiasis [None]

NARRATIVE: CASE EVENT DATE: 20191001
